FAERS Safety Report 20987041 (Version 1)
Quarter: 2022Q2

REPORT INFORMATION
  Report Type: Other
  Country: None (occurrence: US)
  Receive Date: 20220621
  Receipt Date: 20220621
  Transmission Date: 20220721
  Serious: Yes (Hospitalization, Other)
  Sender: FDA-Public Use
  Company Number: US-Appco Pharma LLC-2130079

PATIENT
  Age: 83 Year
  Sex: Female

DRUGS (1)
  1. METRONIDAZOLE [Suspect]
     Active Substance: METRONIDAZOLE
     Indication: Clostridium difficile infection
     Route: 048

REACTIONS (7)
  - Drug intolerance [Unknown]
  - Nausea [Unknown]
  - Weight decreased [Unknown]
  - Therapy non-responder [Unknown]
  - Pleural effusion [Unknown]
  - Empyema [Unknown]
  - Pleurisy [Unknown]
